FAERS Safety Report 8595333 (Version 3)
Quarter: 2013Q4

REPORT INFORMATION
  Report Type: Spontaneous
  Country: DE (occurrence: DE)
  Receive Date: 20120604
  Receipt Date: 20131224
  Transmission Date: 20140711
  Serious: Yes (Other)
  Sender: FDA-Public Use
  Company Number: DE-ELI_LILLY_AND_COMPANY-DE201205008057

PATIENT
  Age: 69 Year
  Sex: Male

DRUGS (1)
  1. OLANZAPINE [Suspect]
     Dosage: 5 MG, SINGLE
     Route: 048

REACTIONS (2)
  - Atrioventricular block [Unknown]
  - Hypothermia [Unknown]
